FAERS Safety Report 24723581 (Version 2)
Quarter: 2025Q1

REPORT INFORMATION
  Report Type: Spontaneous
  Country: US (occurrence: US)
  Receive Date: 20241211
  Receipt Date: 20250211
  Transmission Date: 20250409
  Serious: No
  Sender: SANOFI AVENTIS
  Company Number: US-SA-2024SA362746

PATIENT
  Age: 39 Year
  Sex: Female

DRUGS (1)
  1. DUPIXENT [Suspect]
     Active Substance: DUPILUMAB
     Indication: Sinus polyp
     Dosage: 300 MG, QOW
     Route: 058

REACTIONS (6)
  - Stomatitis [Unknown]
  - Nasopharyngitis [Unknown]
  - Headache [Unknown]
  - Arthralgia [Unknown]
  - Injection site erythema [Unknown]
  - Injection site swelling [Unknown]
